FAERS Safety Report 6549293-5 (Version None)
Quarter: 2010Q1

REPORT INFORMATION
  Report Type: 
  Country: None (occurrence: None)
  Receive Date: 20100125
  Receipt Date: 20100115
  Transmission Date: 20100710
  Serious: Yes (Other)
  Sender: FDA-Public Use
  Company Number: IE-ASTRAZENECA-2010SE02049

PATIENT
  Age: 47 Year
  Sex: Female

DRUGS (1)
  1. XYLOCAINE 2% WITH ADENALINE [Suspect]
     Indication: SKIN NEOPLASM EXCISION
     Route: 065
     Dates: start: 20041129

REACTIONS (3)
  - ASTHENIA [None]
  - DRUG EFFECT DELAYED [None]
  - HEMIPARESIS [None]
